FAERS Safety Report 5533549-9 (Version None)
Quarter: 2007Q4

REPORT INFORMATION
  Report Type: 
  Country: None (occurrence: None)
  Receive Date: 20071119
  Receipt Date: 20070928
  Transmission Date: 20080405
  Serious: No
  Sender: FDA-Public Use
  Company Number: TPA2007A02015

PATIENT
  Age: 78 Year
  Sex: Male
  Weight: 65.7716 kg

DRUGS (5)
  1. ROZEREM [Suspect]
     Indication: INSOMNIA
     Dosage: 8 MG, QHS, PER ORAL ; 8 MG, 2 TABLETS, PER ORAL
     Route: 048
     Dates: start: 20070101
  2. OXYCODONE (OXYCODONE) (TABLETS) [Concomitant]
  3. XANAX [Concomitant]
  4. GLIPIZIDE [Concomitant]
  5. NEXIUM [Concomitant]

REACTIONS (6)
  - BLOOD GLUCOSE INCREASED [None]
  - DIABETES MELLITUS [None]
  - DRUG INEFFECTIVE [None]
  - INSOMNIA [None]
  - MIDDLE INSOMNIA [None]
  - OVERDOSE [None]
